FAERS Safety Report 11785764 (Version 1)
Quarter: 2015Q4

REPORT INFORMATION
  Report Type: Spontaneous
  Country: GB (occurrence: GB)
  Receive Date: 20151130
  Receipt Date: 20151130
  Transmission Date: 20160305
  Serious: Yes (Hospitalization, Other)
  Sender: FDA-Public Use
  Company Number: GB-GLAXOSMITHKLINE-GB2015166853

PATIENT
  Age: 86 Year
  Sex: Male

DRUGS (2)
  1. ACICLOVIR [Suspect]
     Active Substance: ACYCLOVIR
     Indication: HERPES ZOSTER
     Dosage: 800 MG, 5D
     Route: 048
  2. AMITRIPTYLINE [Suspect]
     Active Substance: AMITRIPTYLINE
     Indication: PRODUCT USED FOR UNKNOWN INDICATION
     Dosage: 10-20 MG AT NIGHT WHEN REQUIRED.
     Route: 048
     Dates: start: 20151026

REACTIONS (3)
  - Confusional state [Unknown]
  - Encephalitis [Unknown]
  - Incorrect dose administered [Unknown]
